FAERS Safety Report 23504310 (Version 1)
Quarter: 2024Q1

REPORT INFORMATION
  Report Type: Spontaneous
  Country: US (occurrence: US)
  Receive Date: 20240209
  Receipt Date: 20240209
  Transmission Date: 20240409
  Serious: Yes (Life-Threatening, Hospitalization, Other)
  Sender: FDA-Public Use
  Company Number: US-SUN PHARMACEUTICAL INDUSTRIES LTD-2024R1-430447

PATIENT
  Age: 27 Year
  Sex: Female

DRUGS (5)
  1. AMITRIPTYLINE [Suspect]
     Active Substance: AMITRIPTYLINE
     Indication: Status migrainosus
     Dosage: UNK
     Route: 065
  2. ACETAZOLAMIDE [Suspect]
     Active Substance: ACETAZOLAMIDE
     Indication: Idiopathic intracranial hypertension
     Dosage: UNK
     Route: 065
  3. PREDNISONE [Suspect]
     Active Substance: PREDNISONE
     Indication: Status migrainosus
     Dosage: 60 MILLIGRAM
     Route: 065
  4. TOPIRAMATE [Suspect]
     Active Substance: TOPIRAMATE
     Indication: Status migrainosus
     Dosage: UNK
     Route: 065
  5. VALPROIC ACID [Suspect]
     Active Substance: VALPROIC ACID
     Indication: Status migrainosus
     Dosage: UNK
     Route: 065

REACTIONS (7)
  - Acute chest syndrome [Recovering/Resolving]
  - Haemorrhage [Recovering/Resolving]
  - Liver function test abnormal [Recovering/Resolving]
  - Mental status changes [Recovering/Resolving]
  - Multi-organ disorder [Unknown]
  - Respiratory failure [Recovering/Resolving]
  - Sickle cell anaemia with crisis [Recovering/Resolving]
